FAERS Safety Report 18917232 (Version 1)
Quarter: 2021Q1

REPORT INFORMATION
  Report Type: Spontaneous
  Country: JP (occurrence: JP)
  Receive Date: 20210219
  Receipt Date: 20210219
  Transmission Date: 20210420
  Serious: Yes (Hospitalization, Other)
  Sender: FDA-Public Use
  Company Number: JP-009507513-2011JPN002183J

PATIENT
  Age: 59 Year
  Sex: Male
  Weight: 77 kg

DRUGS (9)
  1. EQUA [Concomitant]
     Active Substance: VILDAGLIPTIN
     Indication: DIABETES MELLITUS
     Dosage: 50 MILLIGRAM, BID
     Route: 048
  2. HUMALOG [Concomitant]
     Active Substance: INSULIN LISPRO
     Indication: DIABETES MELLITUS
     Dosage: SLIDING, TID
     Route: 058
     Dates: start: 20191118
  3. RIFAMPIN. [Concomitant]
     Active Substance: RIFAMPIN
     Indication: POSTOPERATIVE WOUND INFECTION
     Dosage: 450 MILLIGRAM, QD
     Route: 048
     Dates: start: 20191125, end: 20200105
  4. METFORMIN [Concomitant]
     Active Substance: METFORMIN HYDROCHLORIDE
     Indication: DIABETES MELLITUS
     Dosage: 500 MILLIGRAM, BID
     Route: 048
     Dates: end: 20191212
  5. METFORMIN [Concomitant]
     Active Substance: METFORMIN HYDROCHLORIDE
     Dosage: 250 MILLIGRAM, BID
     Route: 048
     Dates: start: 20191213
  6. VANCOMYCIN [Concomitant]
     Active Substance: VANCOMYCIN
     Dosage: 1.25 GRAM, BID
     Route: 041
     Dates: start: 20191129, end: 20191202
  7. CUBICIN [Suspect]
     Active Substance: DAPTOMYCIN
     Indication: POSTOPERATIVE WOUND INFECTION
     Dosage: 600 MILLIGRAM, QD
     Route: 041
     Dates: start: 20191203, end: 20191211
  8. MINOMYCIN [Concomitant]
     Active Substance: MINOCYCLINE HYDROCHLORIDE
     Indication: POSTOPERATIVE WOUND INFECTION
     Dosage: 100 MILLIGRAM, BID
     Route: 048
     Dates: start: 20191203
  9. VANCOMYCIN [Concomitant]
     Active Substance: VANCOMYCIN
     Indication: POSTOPERATIVE WOUND INFECTION
     Dosage: 1 GRAM, BID
     Route: 041
     Dates: start: 20191126, end: 20191128

REACTIONS (2)
  - Rhabdomyolysis [Recovered/Resolved]
  - Renal disorder [Recovering/Resolving]

NARRATIVE: CASE EVENT DATE: 20191212
